FAERS Safety Report 5441118-4 (Version None)
Quarter: 2007Q3

REPORT INFORMATION
  Report Type: 
  Country: None (occurrence: None)
  Receive Date: 20070831
  Receipt Date: 20070821
  Transmission Date: 20080115
  Serious: Yes (Other)
  Sender: FDA-Public Use
  Company Number: US-PFIZER INC-2007060775

PATIENT
  Sex: Female
  Weight: 79.4 kg

DRUGS (6)
  1. CHANTIX [Suspect]
     Indication: SMOKING CESSATION THERAPY
  2. PREVACID [Concomitant]
  3. HEPAGRISEVIT FORTE-N TABLET [Concomitant]
  4. ESTRADIOL [Concomitant]
  5. ASCORBIC ACID [Concomitant]
  6. VALIUM [Concomitant]

REACTIONS (16)
  - AMNESIA [None]
  - ANXIETY [None]
  - ARTHRALGIA [None]
  - CHEST DISCOMFORT [None]
  - DEPRESSION [None]
  - DISTURBANCE IN ATTENTION [None]
  - DIZZINESS [None]
  - HOT FLUSH [None]
  - IRRITABILITY [None]
  - LIPIDS INCREASED [None]
  - MYALGIA [None]
  - NIGHT SWEATS [None]
  - PAIN IN EXTREMITY [None]
  - PANIC REACTION [None]
  - SLEEP DISORDER [None]
  - TINNITUS [None]
